FAERS Safety Report 21125083 (Version 4)
Quarter: 2022Q4

REPORT INFORMATION
  Report Type: Report from Study
  Country: US (occurrence: US)
  Receive Date: 20220725
  Receipt Date: 20221018
  Transmission Date: 20230113
  Serious: Yes (Death, Hospitalization, Other)
  Sender: FDA-Public Use
  Company Number: US-TAKEDA-2022TUS049319

PATIENT
  Age: 23 Year
  Sex: Female
  Weight: 31.746 kg

DRUGS (37)
  1. HUMAN IMMUNOGLOBULIN G\HYALURONIDASE RECOMBINANT HUMAN [Suspect]
     Active Substance: HUMAN IMMUNOGLOBULIN G\HYALURONIDASE RECOMBINANT HUMAN
     Indication: Immunodeficiency common variable
     Dosage: 30 GRAM, Q4WEEKS
     Route: 058
     Dates: start: 20220712
  2. DIPHENHYDRAMINE [Concomitant]
     Active Substance: DIPHENHYDRAMINE
  3. BACTRIM [Concomitant]
     Active Substance: SULFAMETHOXAZOLE\TRIMETHOPRIM
  4. ATENOLOL [Concomitant]
     Active Substance: ATENOLOL
  5. RITUXAN [Concomitant]
     Active Substance: RITUXIMAB
  6. OXYCODONE HYDROCHLORIDE [Concomitant]
     Active Substance: OXYCODONE HYDROCHLORIDE
  7. ACYCLOVIR [Concomitant]
     Active Substance: ACYCLOVIR
  8. EPINEPHRINE [Concomitant]
     Active Substance: EPINEPHRINE
  9. FLUOXETINE HYDROCHLORIDE [Concomitant]
     Active Substance: FLUOXETINE HYDROCHLORIDE
  10. POTASSIUM CHLORIDE [Concomitant]
     Active Substance: POTASSIUM CHLORIDE
  11. PROTOPIC [Concomitant]
     Active Substance: TACROLIMUS
  12. MIRTAZAPINE [Concomitant]
     Active Substance: MIRTAZAPINE
  13. NORETHINDRONE [Concomitant]
     Active Substance: NORETHINDRONE
  14. PROCRIT [Concomitant]
     Active Substance: ERYTHROPOIETIN
  15. BRUKINSA [Concomitant]
     Active Substance: ZANUBRUTINIB
  16. HIZENTRA [Concomitant]
     Active Substance: HUMAN IMMUNOGLOBULIN G
  17. ACETAMINOPHEN [Concomitant]
     Active Substance: ACETAMINOPHEN
  18. TACROLIMUS [Concomitant]
     Active Substance: TACROLIMUS
  19. FAMOTIDINE [Concomitant]
     Active Substance: FAMOTIDINE
  20. SODIUM CHLORIDE [Concomitant]
     Active Substance: SODIUM CHLORIDE
  21. MELATONIN [Concomitant]
     Active Substance: MELATONIN
  22. MAGNESIUM [Concomitant]
     Active Substance: MAGNESIUM
  23. PROCHLORPERAZINE MALEATE [Concomitant]
     Active Substance: PROCHLORPERAZINE MALEATE
  24. MONTELUKAST SODIUM [Concomitant]
     Active Substance: MONTELUKAST SODIUM
  25. LIDOCAINE [Concomitant]
     Active Substance: LIDOCAINE
  26. Lmx [Concomitant]
  27. LOPERAMIDE [Concomitant]
     Active Substance: LOPERAMIDE
  28. MUPIROCIN [Concomitant]
     Active Substance: MUPIROCIN
  29. CALCITRIOL [Concomitant]
     Active Substance: CALCITRIOL
  30. LOMOTIL [Concomitant]
     Active Substance: ATROPINE SULFATE\DIPHENOXYLATE HYDROCHLORIDE
  31. LIQUACEL [Concomitant]
  32. CETIRIZINE HCL [Concomitant]
     Active Substance: CETIRIZINE HYDROCHLORIDE
  33. ONDANSETRON HCL [Concomitant]
     Active Substance: ONDANSETRON HYDROCHLORIDE
  34. POLIVY [Concomitant]
     Active Substance: POLATUZUMAB VEDOTIN-PIIQ
  35. VITAMINS [Concomitant]
     Active Substance: VITAMINS
  36. DESONIDE [Concomitant]
     Active Substance: DESONIDE
  37. CETIRIZINE HYDROCHLORIDE [Concomitant]
     Active Substance: CETIRIZINE HYDROCHLORIDE

REACTIONS (7)
  - Death [Fatal]
  - Pneumonia [Recovered/Resolved]
  - Respiratory distress [Unknown]
  - Fungal infection [Unknown]
  - Multiple organ dysfunction syndrome [Unknown]
  - Nausea [Unknown]
  - Vomiting [Unknown]

NARRATIVE: CASE EVENT DATE: 20220704
